FAERS Safety Report 4821939-9 (Version None)
Quarter: 2005Q4

REPORT INFORMATION
  Report Type: 
  Country: None (occurrence: None)
  Receive Date: 20051103
  Receipt Date: 20051011
  Transmission Date: 20060501
  Serious: Yes (Life-Threatening)
  Sender: FDA-Public Use
  Company Number: 6016025F

PATIENT
  Age: 58 Year
  Sex: Male

DRUGS (3)
  1. NIASPAN [Suspect]
     Indication: HYPERLIPIDAEMIA
     Dosage: 375 MG QD PO
     Route: 048
  2. ALLOPURINOL [Suspect]
     Indication: HYPERURICAEMIA
     Dosage: 50 MG QD PO
     Route: 048
     Dates: start: 20050515
  3. ATORVASTATIN CALCIUM [Suspect]
     Indication: HYPERLIPIDAEMIA
     Dosage: 40 MG QD PO
     Route: 048

REACTIONS (6)
  - CHEST DISCOMFORT [None]
  - ERYTHEMA [None]
  - FEELING HOT [None]
  - PRURITUS [None]
  - RETROGRADE AMNESIA [None]
  - SYNCOPE [None]
